FAERS Safety Report 4432637-8 (Version None)
Quarter: 2004Q3

REPORT INFORMATION
  Report Type: 
  Country: None (occurrence: None)
  Receive Date: 20040820
  Receipt Date: 20040811
  Transmission Date: 20050211
  Serious: Yes (Other)
  Sender: FDA-Public Use
  Company Number: 2004UW17067

PATIENT
  Age: 9 Year
  Sex: Female
  Weight: 24.9478 kg

DRUGS (2)
  1. SEROQUEL [Suspect]
     Indication: TOURETTE'S DISORDER
  2. DEPAKOTE [Concomitant]

REACTIONS (1)
  - NEUTROPENIA [None]
